FAERS Safety Report 8323141-5 (Version None)
Quarter: 2012Q2

REPORT INFORMATION
  Report Type: 
  Country: None (occurrence: None)
  Receive Date: 20120430
  Receipt Date: 20120425
  Transmission Date: 20120825
  Serious: Yes (Death, Life-Threatening, Hospitalization, Other)
  Sender: FDA-Public Use
  Company Number: PHHO2009GB09083

PATIENT
  Sex: Male
  Weight: 132 kg

DRUGS (3)
  1. DEXAMETHASONE [Suspect]
     Dosage: 4 MG, BID
     Route: 048
     Dates: start: 20090722
  2. DEXAMETHASONE [Suspect]
     Indication: PNEUMONITIS
     Dosage: 8 MG, BID
     Route: 048
     Dates: start: 20090720, end: 20090722
  3. EVEROLIMUS [Suspect]
     Indication: METASTATIC RENAL CELL CARCINOMA
     Dosage: 10 MG DAILY
     Route: 048
     Dates: start: 20090625, end: 20090717

REACTIONS (9)
  - DYSPNOEA [None]
  - LETHARGY [None]
  - DIABETES MELLITUS INADEQUATE CONTROL [None]
  - ACTIVITIES OF DAILY LIVING IMPAIRED [None]
  - VISUAL IMPAIRMENT [None]
  - PRODUCTIVE COUGH [None]
  - DEATH [None]
  - INTERSTITIAL LUNG DISEASE [None]
  - HYPERGLYCAEMIA [None]
